FAERS Safety Report 9457288 (Version 1)
Quarter: 2013Q3

REPORT INFORMATION
  Report Type: Spontaneous
  Country: FI (occurrence: FI)
  Receive Date: 20130814
  Receipt Date: 20130814
  Transmission Date: 20140515
  Serious: Yes (Hospitalization, Other)
  Sender: FDA-Public Use
  Company Number: PHHY2013FI085589

PATIENT
  Age: 41 Year
  Sex: Male

DRUGS (8)
  1. LEPONEX [Suspect]
     Indication: MENTAL DISORDER
     Dosage: 200 MG, DAILY
     Route: 048
     Dates: start: 200806, end: 200810
  2. LEPONEX [Suspect]
     Dosage: 600 MG, DAILY
     Route: 048
     Dates: end: 20130719
  3. CIPRALEX                                /DEN/ [Concomitant]
     Indication: MENTAL DISORDER
     Dosage: 10 MG, UNK
     Route: 048
  4. MUCOMYST                                /NET/ [Concomitant]
     Dosage: 600 MG, UNK
     Route: 048
  5. VENTOLIN DISKUS [Concomitant]
     Indication: RESPIRATORY DISORDER
     Dosage: UNK UKN, PRN
  6. FUNGORIN [Concomitant]
     Indication: TINEA INFECTION
     Dosage: 250 MG, UNK
     Route: 048
  7. OPAMOX [Concomitant]
     Indication: ANXIETY
     Dosage: UNK UKN, PRN
     Route: 048
  8. SIMVASTATIN [Concomitant]
     Indication: HYPERCHOLESTEROLAEMIA
     Dosage: 40 MG, UNK
     Route: 048

REACTIONS (2)
  - Cardiac failure [Not Recovered/Not Resolved]
  - Deep vein thrombosis [Unknown]
